FAERS Safety Report 11812667 (Version 1)
Quarter: 2015Q4

REPORT INFORMATION
  Report Type: Spontaneous
  Country: FR (occurrence: FR)
  Receive Date: 20151208
  Receipt Date: 20151208
  Transmission Date: 20160305
  Serious: Yes (Other)
  Sender: FDA-Public Use
  Company Number: FR-IGI LABORATORIES, INC.-1045229

PATIENT
  Age: 36 Year
  Sex: Female

DRUGS (20)
  1. EMEND [Suspect]
     Active Substance: APREPITANT
     Route: 048
     Dates: start: 20150316, end: 20150316
  2. PARACETAMOL [Concomitant]
     Active Substance: ACETAMINOPHEN
  3. AVASTIN [Concomitant]
     Active Substance: BEVACIZUMAB
  4. BRICANYL [Concomitant]
     Active Substance: TERBUTALINE SULFATE
  5. POLARAMINE [Concomitant]
     Active Substance: DEXCHLORPHENIRAMINE MALEATE
  6. PANTOPRAZOLE [Concomitant]
     Active Substance: PANTOPRAZOLE SODIUM
  7. LORAMYC [Concomitant]
     Active Substance: MICONAZOLE
  8. SOLU-MEDROL [Concomitant]
     Active Substance: METHYLPREDNISOLONE SODIUM SUCCINATE
  9. CARBOPLATIN. [Suspect]
     Active Substance: CARBOPLATIN
     Route: 042
     Dates: start: 20150316, end: 20150316
  10. KYTRIL [Suspect]
     Active Substance: GRANISETRON HYDROCHLORIDE
     Route: 042
     Dates: start: 20150316, end: 20150316
  11. CORTANCYL [Concomitant]
     Active Substance: PREDNISONE
  12. PNEUMOREL [Concomitant]
     Active Substance: FENSPIRIDE HYDROCHLORIDE
  13. GAVISCON [Concomitant]
     Active Substance: ALUMINUM HYDROXIDE\MAGNESIUM CARBONATE
  14. LOXEN [Concomitant]
     Active Substance: NICARDIPINE HYDROCHLORIDE
  15. FORLAX [Concomitant]
     Active Substance: POLYETHYLENE GLYCOL 4000
  16. PRIMPERAN [Concomitant]
     Active Substance: METOCLOPRAMIDE HYDROCHLORIDE
  17. ALUMINUM HYDROXIDE. [Concomitant]
     Active Substance: ALUMINUM HYDROXIDE
  18. PULMICORT TURBUHALER [Concomitant]
     Active Substance: BUDESONIDE
  19. ZANTAC [Suspect]
     Active Substance: RANITIDINE HYDROCHLORIDE
     Route: 042
     Dates: start: 20150316, end: 20150316
  20. PACLITAXEL. [Suspect]
     Active Substance: PACLITAXEL
     Route: 042
     Dates: start: 20150316, end: 20150316

REACTIONS (2)
  - Prurigo [Recovered/Resolved]
  - Rash erythematous [Recovered/Resolved]

NARRATIVE: CASE EVENT DATE: 20150316
